FAERS Safety Report 8690041 (Version 2)
Quarter: 2012Q4

REPORT INFORMATION
  Report Type: 
  Country: US (occurrence: US)
  Receive Date: 20120727
  Receipt Date: 20121101
  Transmission Date: 20130627
  Serious: Yes (Other)
  Sender: FDA-Public Use
  Company Number: US-ASTRAZENECA-2012SE10510

PATIENT
  Age: 31 Year
  Sex: Female
  Weight: 71.2 kg

DRUGS (5)
  1. SEROQUEL XR [Suspect]
     Indication: BIPOLAR DISORDER
     Route: 048
     Dates: start: 2010, end: 2012
  2. SEROQUEL XR [Suspect]
     Indication: DEPRESSION
     Route: 048
     Dates: start: 2010, end: 2012
  3. SEROQUEL XR [Suspect]
     Indication: BIPOLAR DISORDER
     Route: 048
  4. SEROQUEL XR [Suspect]
     Indication: DEPRESSION
     Route: 048
  5. DILANTIN [Concomitant]
     Indication: CONVULSION

REACTIONS (11)
  - Convulsion [Unknown]
  - Blood pressure increased [Unknown]
  - Dissociative identity disorder [Unknown]
  - Adverse event [Unknown]
  - Eyelid disorder [Unknown]
  - Feeling abnormal [Unknown]
  - Libido decreased [Unknown]
  - Bronchitis [Unknown]
  - Heart rate increased [Unknown]
  - Drug dose omission [Unknown]
  - Intentional drug misuse [Unknown]
